FAERS Safety Report 25837374 (Version 1)
Quarter: 2025Q3

REPORT INFORMATION
  Report Type: Spontaneous
  Country: US (occurrence: US)
  Receive Date: 20250923
  Receipt Date: 20250923
  Transmission Date: 20251020
  Serious: Yes (Hospitalization)
  Sender: VERTEX
  Company Number: US-VERTEX PHARMACEUTICALS-2025-015634

PATIENT
  Sex: Female

DRUGS (3)
  1. SYMDEKO [Suspect]
     Active Substance: IVACAFTOR\TEZACAFTOR
     Indication: Cystic fibrosis
     Dosage: 1 TABLET (01 YELLOW TABLET IN THE MORNING AND 01 LIGHT BLUE TABLET IN THE EVENING), BID
     Route: 048
     Dates: start: 20250110
  2. AZTREONAM LYSINE [Suspect]
     Active Substance: AZTREONAM LYSINE
     Indication: Cystic fibrosis lung
     Dosage: INHALATION VAPOUR, LIQUID, 01 VIAL VIA PARI ALTERA NEBULIZER 03 TIMES A DAY, TID
     Dates: start: 20210201
  3. AZTREONAM LYSINE [Suspect]
     Active Substance: AZTREONAM LYSINE
     Indication: Cystic fibrosis

REACTIONS (1)
  - Illness [Unknown]
